FAERS Safety Report 6434284-5 (Version None)
Quarter: 2009Q4

REPORT INFORMATION
  Report Type: 
  Country: None (occurrence: None)
  Receive Date: 20091110
  Receipt Date: 20091102
  Transmission Date: 20100525
  Serious: Yes (Other)
  Sender: FDA-Public Use
  Company Number: US-AMGEN-KDL372654

PATIENT
  Sex: Female
  Weight: 77.2 kg

DRUGS (7)
  1. PROCRIT [Suspect]
     Indication: ANAEMIA OF MALIGNANT DISEASE
  2. ARANESP [Suspect]
     Indication: ANAEMIA OF MALIGNANT DISEASE
  3. RITUXAN [Concomitant]
  4. NEXIUM [Concomitant]
  5. MULTI-VITAMINS [Concomitant]
  6. ASCORBIC ACID [Concomitant]
  7. CALCIUM [Concomitant]

REACTIONS (1)
  - DIFFUSE LARGE B-CELL LYMPHOMA [None]
